FAERS Safety Report 8165798-8 (Version None)
Quarter: 2012Q1

REPORT INFORMATION
  Report Type: 
  Country: None (occurrence: None)
  Receive Date: 20120223
  Receipt Date: 20120223
  Transmission Date: 20120608
  Serious: Yes (Other)
  Sender: FDA-Public Use
  Company Number: None

PATIENT
  Sex: Male
  Weight: 83.4619 kg

DRUGS (1)
  1. AVELOX [Suspect]
     Indication: RESPIRATORY TRACT INFECTION
     Dosage: 400 MG 1-A-DAY FOR 7 DAYS MOUTH
     Route: 048
     Dates: start: 20120110

REACTIONS (6)
  - SOMNOLENCE [None]
  - LETHARGY [None]
  - OEDEMA MOUTH [None]
  - MUSCLE RIGIDITY [None]
  - SHOCK [None]
  - SWOLLEN TONGUE [None]
